FAERS Safety Report 7804955-4 (Version None)
Quarter: 2011Q4

REPORT INFORMATION
  Report Type: 
  Country: None (occurrence: None)
  Receive Date: 20111010
  Receipt Date: 20110929
  Transmission Date: 20120403
  Serious: Yes (Other)
  Sender: FDA-Public Use
  Company Number: PHHY2011IT86432

PATIENT
  Age: 43 Year
  Sex: Female

DRUGS (1)
  1. PYRIDOSTIGMINE BROMIDE [Suspect]
     Indication: MYASTHENIA GRAVIS
     Dosage: 210 MG/DAY

REACTIONS (3)
  - HYPERSENSITIVITY [None]
  - MUSCLE TWITCHING [None]
  - DIARRHOEA [None]
